FAERS Safety Report 6103782-6 (Version None)
Quarter: 2009Q1

REPORT INFORMATION
  Report Type: 
  Country: None (occurrence: None)
  Receive Date: 20090305
  Receipt Date: 20090224
  Transmission Date: 20090719
  Serious: Yes (Other)
  Sender: FDA-Public Use
  Company Number: US-ABBOTT-09P-163-0559069-00

PATIENT
  Sex: Female

DRUGS (1)
  1. LUPRON DEPOT [Suspect]
     Indication: UTERINE LEIOMYOMA
     Dates: start: 20080815, end: 20090101

REACTIONS (3)
  - ENDOMETRIAL CANCER [None]
  - ENDOMETRIAL HYPERTROPHY [None]
  - MENSTRUATION IRREGULAR [None]
